FAERS Safety Report 16693357 (Version 1)
Quarter: 2019Q3

REPORT INFORMATION
  Report Type: Spontaneous
  Country: US (occurrence: US)
  Receive Date: 20190625
  Receipt Date: 20190625
  Transmission Date: 20191004
  Serious: No
  Sender: FDA-Public Use
  Company Number: None

PATIENT
  Age: 85 Year
  Sex: Male

DRUGS (1)
  1. AFINITOR [Suspect]
     Active Substance: EVEROLIMUS
     Dates: start: 201904

REACTIONS (6)
  - Diarrhoea [None]
  - Full blood count decreased [None]
  - Pruritus [None]
  - Joint swelling [None]
  - Stomatitis [None]
  - Dyspnoea [None]

NARRATIVE: CASE EVENT DATE: 20190625
